FAERS Safety Report 26006560 (Version 1)
Quarter: 2025Q4

REPORT INFORMATION
  Report Type: Spontaneous
  Country: JP (occurrence: JP)
  Receive Date: 20251106
  Receipt Date: 20251106
  Transmission Date: 20260118
  Serious: Yes (Hospitalization, Other)
  Sender: MERCK SHARP & DOHME LLC
  Company Number: JP-009507513-2275262

PATIENT
  Age: 81 Year
  Sex: Female
  Weight: 50.7 kg

DRUGS (10)
  1. KEYTRUDA [Suspect]
     Active Substance: PEMBROLIZUMAB
     Indication: Uterine cancer
     Route: 041
     Dates: start: 20240528, end: 20250307
  2. NIFEDIPINE [Concomitant]
     Active Substance: NIFEDIPINE
  3. ROSUVASTATIN CALCIUM [Concomitant]
     Active Substance: ROSUVASTATIN CALCIUM
  4. BEZAFIBRATE [Concomitant]
     Active Substance: BEZAFIBRATE
  5. VONOPRAZAN FUMARATE [Concomitant]
     Active Substance: VONOPRAZAN FUMARATE
  6. MAGNESIUM OXIDE [Concomitant]
     Active Substance: MAGNESIUM OXIDE
  7. ESZOPICLONE [Concomitant]
     Active Substance: ESZOPICLONE
  8. SAMSCA [Concomitant]
     Active Substance: TOLVAPTAN
  9. TU-100 [Concomitant]
     Active Substance: ASIAN GINSENG\GINGER\ZANTHOXYLUM PIPERITUM FRUIT PULP
  10. BELSOMRA [Concomitant]
     Active Substance: SUVOREXANT

REACTIONS (5)
  - Loss of consciousness [Recovered/Resolved]
  - Adrenal insufficiency [Recovering/Resolving]
  - Myositis [Recovering/Resolving]
  - Cytokine release syndrome [Recovering/Resolving]
  - Hypoglycaemia [Unknown]

NARRATIVE: CASE EVENT DATE: 20250328
